FAERS Safety Report 6692060-2 (Version None)
Quarter: 2010Q2

REPORT INFORMATION
  Report Type: 
  Country: None (occurrence: None)
  Receive Date: 20100422
  Receipt Date: 20100413
  Transmission Date: 20101027
  Serious: Yes (Other)
  Sender: FDA-Public Use
  Company Number: PHHY2010US19061

PATIENT
  Sex: Female
  Weight: 115 kg

DRUGS (7)
  1. ZOMETA [Suspect]
     Indication: MULTIPLE MYELOMA
     Dosage: 4MG EVERY 4 WEEKS
     Route: 042
     Dates: start: 20040801
  2. ZOMETA [Suspect]
     Dosage: 3 MG FOR 4 WEEKS
     Route: 042
     Dates: end: 20100204
  3. ACTIQ [Concomitant]
     Indication: PAIN
  4. DILAUDID [Concomitant]
     Route: 037
  5. METHADONE HCL [Concomitant]
  6. REVLIMID [Concomitant]
  7. BUSPAN [Concomitant]

REACTIONS (5)
  - BONE LESION [None]
  - BONE PAIN [None]
  - OPEN WOUND [None]
  - OSTEONECROSIS [None]
  - TONGUE DISORDER [None]
